FAERS Safety Report 4998319-9 (Version None)
Quarter: 2006Q2

REPORT INFORMATION
  Report Type: 
  Country: None (occurrence: None)
  Receive Date: 20060508
  Receipt Date: 20060428
  Transmission Date: 20061013
  Serious: Yes (Disabling)
  Sender: FDA-Public Use
  Company Number: 2006-03-1937

PATIENT
  Age: 57 Year
  Sex: Male
  Weight: 74.8435 kg

DRUGS (3)
  1. PEG-INTRON [Suspect]
     Indication: HEPATITIS C
     Dosage: SUBCUTANEOUS
     Route: 058
     Dates: start: 20050406, end: 20050920
  2. RIBAVIRIN [Suspect]
     Indication: HEPATITIS C
     Dosage: 800-1000 MG/D ORAL
     Route: 048
     Dates: start: 20050406, end: 20050920
  3. PHENERGAN HCL [Concomitant]

REACTIONS (11)
  - ABNORMAL SENSATION IN EYE [None]
  - ANAEMIA [None]
  - COGNITIVE DISORDER [None]
  - DEMENTIA [None]
  - DISTURBANCE IN ATTENTION [None]
  - EYE PAIN [None]
  - IMPAIRED WORK ABILITY [None]
  - READING DISORDER [None]
  - RETINAL EXUDATES [None]
  - VISION BLURRED [None]
  - VISUAL EVOKED POTENTIALS ABNORMAL [None]
